FAERS Safety Report 9687555 (Version 1)
Quarter: 2013Q4

REPORT INFORMATION
  Report Type: Spontaneous
  Country: DE (occurrence: DE)
  Receive Date: 20131114
  Receipt Date: 20131114
  Transmission Date: 20140711
  Serious: Yes (Life-Threatening)
  Sender: FDA-Public Use
  Company Number: DE-AMGEN-DEUSP2013079404

PATIENT
  Sex: Male

DRUGS (23)
  1. PEGFILGRASTIM [Suspect]
     Indication: B-CELL LYMPHOMA
     Dosage: 6 MG, QD
     Route: 058
     Dates: start: 20131008, end: 20131008
  2. RITUXIMAB [Suspect]
     Indication: B-CELL LYMPHOMA
     Dosage: 810 MG, QD
     Route: 042
     Dates: end: 20131004
  3. CYCLOPHOSPHAMIDE [Suspect]
     Indication: B-CELL LYMPHOMA
     Dosage: 1620 MG, UNK
     Route: 042
     Dates: end: 20131005
  4. DOXORUBICINE /00330901/ [Suspect]
     Indication: B-CELL LYMPHOMA
     Dosage: 108 MG, UNK
     Route: 042
     Dates: end: 20131005
  5. VINCRISTINE [Suspect]
     Indication: B-CELL LYMPHOMA
     Dosage: 4.36 MG, QD
     Route: 042
     Dates: start: 20130905, end: 20130905
  6. PREDNISONE [Suspect]
     Indication: B-CELL LYMPHOMA
     Dosage: 100 MG, QD FOR 6 DAYS
     Route: 065
     Dates: start: 20131005, end: 20131009
  7. PREDNISONE [Suspect]
     Dosage: 50MG 1/1 DAY FOR 1 DAY, 25MG 1/1 DAY FOR 1 DAY, 12.5MG 1/1 DAY FOR 1 DAY
     Route: 065
     Dates: start: 20131010, end: 20131012
  8. METOPROLOL [Concomitant]
     Indication: HYPERTENSION
     Dosage: 23.75 MG, QD
     Route: 048
     Dates: end: 20131015
  9. ENALAPRIL MALEATE [Concomitant]
     Indication: BLOOD PRESSURE
     Dosage: 5 MG, BID
     Route: 048
     Dates: start: 20130615
  10. METFORMIN [Concomitant]
     Indication: DIABETES MELLITUS
     Dosage: 500 MG, BID
     Route: 048
  11. LEVOTHYROXINE [Concomitant]
     Indication: THYROIDECTOMY
     Dosage: 175 MUG, QD
     Route: 048
  12. ALLOPURINOL [Concomitant]
     Indication: HYPERURICAEMIA
     Dosage: 300 MG, QD
     Route: 048
  13. GRANISETRON [Concomitant]
     Indication: VOMITING
     Dosage: 1 MG, QD
     Route: 048
     Dates: start: 20131005, end: 20131005
  14. ALIZAPRIDE [Concomitant]
     Indication: VOMITING
     Dosage: 200 MG, 24 HRS FOR 2 DAYS
     Route: 042
     Dates: start: 20131005, end: 20131006
  15. MESNA [Concomitant]
     Indication: PROPHYLAXIS
     Dosage: 400 MG, 3 IN 1 D
     Route: 042
     Dates: start: 20131005, end: 20131005
  16. DIMETINDENE MALEATE [Concomitant]
     Dosage: 4 MG, QD
     Route: 042
     Dates: start: 20131005, end: 20131005
  17. RANITIDIN [Concomitant]
     Dosage: 50 MG, QD
     Route: 042
     Dates: start: 20131005, end: 20131005
  18. CHLORTHALIDONE [Concomitant]
     Indication: HYPERTENSION
     Dosage: 25 MG, QD
     Route: 048
  19. TRIMETOPRIM + SULFAMETOXAZOL [Concomitant]
     Dosage: 160 MG, 2 TIMES A DAY ON MONDAY AND 8000 MG 2 TIMES A DAY ON THURSDAY
     Route: 048
  20. ACICLOVIR [Concomitant]
     Dosage: 400 MG, QID
     Route: 048
  21. PANTOPRAZOL [Concomitant]
     Indication: DYSPEPSIA
     Dosage: 40 MG, QD
     Route: 048
  22. AMPHOTERICIN B [Concomitant]
     Dosage: 2 ML, QID
     Route: 048
  23. LORAZEPAM [Concomitant]
     Indication: SLEEP DISORDER
     Dosage: 1 MG, QD
     Route: 048
     Dates: start: 20131005, end: 20131005

REACTIONS (1)
  - Pulmonary embolism [Unknown]
